FAERS Safety Report 4291277-4 (Version None)
Quarter: 2004Q1

REPORT INFORMATION
  Report Type: 
  Country: None (occurrence: None)
  Receive Date: 20040211
  Receipt Date: 20031201
  Transmission Date: 20041129
  Serious: No
  Sender: FDA-Public Use
  Company Number: US-GLAXOSMITHKLINE-A0441476A

PATIENT
  Sex: Female

DRUGS (2)
  1. PAXIL [Suspect]
     Indication: DEPRESSION
     Dosage: 20MG PER DAY
     Route: 048
     Dates: start: 19991101
  2. TEGRETOL [Concomitant]

REACTIONS (4)
  - CRYING [None]
  - SEXUAL DYSFUNCTION [None]
  - URINARY INCONTINENCE [None]
  - WEIGHT INCREASED [None]
